FAERS Safety Report 9043463 (Version 1)
Quarter: 2013Q1

REPORT INFORMATION
  Report Type: Report from Study
  Country: US (occurrence: US)
  Receive Date: 20130129
  Receipt Date: 20130129
  Transmission Date: 20140127
  Serious: No
  Sender: FDA-Public Use
  Company Number: US-ABBOTT-12P-163-0911540-00

PATIENT
  Age: 18 Year
  Sex: Female

DRUGS (9)
  1. HUMIRA 40 MG/0.8 ML PEN [Suspect]
     Indication: CROHN^S DISEASE
     Dates: start: 20111231
  2. IRON [Concomitant]
     Indication: BLOOD IRON DECREASED
     Dosage: DAILY
     Route: 048
  3. PRILOSEC [Concomitant]
     Indication: DYSPEPSIA
     Dosage: 1 TABLET IN THE MORNING
     Route: 048
  4. CLARITIN [Concomitant]
     Indication: MULTIPLE ALLERGIES
     Dosage: DAILY
     Route: 048
  5. PENTASA [Concomitant]
     Indication: CROHN^S DISEASE
     Dosage: 500MG X 2 TAB X 4 TIMES DAILY= 4000MG
     Route: 048
     Dates: start: 201111
  6. BENTYL [Concomitant]
     Indication: CROHN^S DISEASE
     Dosage: 1 TABLET DAILY
     Route: 048
     Dates: start: 201112
  7. CELEXA [Concomitant]
     Indication: DEPRESSION
     Dosage: DAILY
  8. AMBIEN [Concomitant]
     Indication: INSOMNIA
     Dosage: AT BED TIME
  9. MELATONIN [Concomitant]
     Indication: INSOMNIA
     Dosage: AT BED TIME

REACTIONS (3)
  - Injection site swelling [Recovered/Resolved]
  - Injection site erythema [Recovered/Resolved]
  - Injection site pain [Unknown]
